FAERS Safety Report 14257558 (Version 7)
Quarter: 2018Q2

REPORT INFORMATION
  Report Type: Report from Study
  Country: HU (occurrence: HU)
  Receive Date: 20171207
  Receipt Date: 20180503
  Transmission Date: 20180711
  Serious: Yes (Other)
  Sender: FDA-Public Use
  Company Number: HU-ROCHE-1956881

PATIENT
  Age: 58 Year
  Sex: Male

DRUGS (3)
  1. ZELBORAF [Suspect]
     Active Substance: VEMURAFENIB
     Route: 048
     Dates: start: 20170601, end: 20171212
  2. ZELBORAF [Suspect]
     Active Substance: VEMURAFENIB
     Route: 048
     Dates: start: 20171219, end: 20180418
  3. ZELBORAF [Suspect]
     Active Substance: VEMURAFENIB
     Indication: METASTATIC MALIGNANT MELANOMA
     Route: 048
     Dates: start: 20160505, end: 20170522

REACTIONS (13)
  - Deep vein thrombosis [Unknown]
  - Gamma-glutamyltransferase increased [Recovering/Resolving]
  - Keratoacanthoma [Unknown]
  - Anal abscess [Unknown]
  - Blood cholesterol increased [Unknown]
  - Fatigue [Unknown]
  - Heart rate increased [Unknown]
  - Eye disorder [Unknown]
  - Vasospasm [Unknown]
  - Hordeolum [Recovered/Resolved]
  - Lacrimation increased [Unknown]
  - Asthenia [Unknown]
  - Chest pain [Recovered/Resolved]

NARRATIVE: CASE EVENT DATE: 20171123
